FAERS Safety Report 15534933 (Version 24)
Quarter: 2025Q1

REPORT INFORMATION
  Report Type: Report from Study
  Country: CA (occurrence: CA)
  Receive Date: 20181022
  Receipt Date: 20250301
  Transmission Date: 20250409
  Serious: Yes (Hospitalization, Other)
  Sender: TAKEDA
  Company Number: CA-TAKEDA-2018TUS030178

PATIENT
  Age: 73 Year
  Sex: Male

DRUGS (7)
  1. VEDOLIZUMAB [Suspect]
     Active Substance: VEDOLIZUMAB
     Indication: Crohn^s disease
  2. VEDOLIZUMAB [Suspect]
     Active Substance: VEDOLIZUMAB
     Dosage: 300 MILLIGRAM, Q4WEEKS
     Dates: start: 20211210
  3. ESOMEPRAZOLE [Concomitant]
     Active Substance: ESOMEPRAZOLE
  4. BISOPROLOL [Concomitant]
     Active Substance: BISOPROLOL
  5. ASPIRIN [Concomitant]
     Active Substance: ASPIRIN
  6. PREDNISONE [Concomitant]
     Active Substance: PREDNISONE
  7. BUDESONIDE [Concomitant]
     Active Substance: BUDESONIDE

REACTIONS (15)
  - Crohn^s disease [Unknown]
  - Syncope [Unknown]
  - Gastrointestinal infection [Unknown]
  - Immune system disorder [Unknown]
  - Lower respiratory tract infection [Unknown]
  - Pneumonia [Unknown]
  - COVID-19 [Unknown]
  - Gastrointestinal scarring [Unknown]
  - Staphylococcal infection [Unknown]
  - Drug level decreased [Unknown]
  - Drug ineffective [Unknown]
  - Product dose omission issue [Unknown]
  - Off label use [Unknown]
  - Sinus disorder [Unknown]
  - Nasopharyngitis [Unknown]

NARRATIVE: CASE EVENT DATE: 20211105
